FAERS Safety Report 7392641-7 (Version None)
Quarter: 2011Q2

REPORT INFORMATION
  Report Type: 
  Country: None (occurrence: None)
  Receive Date: 20110404
  Receipt Date: 20110328
  Transmission Date: 20111010
  Serious: Yes (Hospitalization)
  Sender: FDA-Public Use
  Company Number: US-US-EMD SERONO, INC.-7045532

PATIENT
  Sex: Female

DRUGS (1)
  1. REBIF [Suspect]
     Indication: MULTIPLE SCLEROSIS
     Route: 058
     Dates: start: 20101112

REACTIONS (4)
  - PROGRESSIVE MULTIPLE SCLEROSIS [None]
  - HYPOXIA [None]
  - CEREBRAL HAEMORRHAGE [None]
  - DYSPNOEA [None]
